FAERS Safety Report 9660794 (Version 2)
Quarter: 2013Q4

REPORT INFORMATION
  Report Type: Report from Study
  Country: CA (occurrence: CA)
  Receive Date: 20131031
  Receipt Date: 20131227
  Transmission Date: 20140711
  Serious: Yes (Other)
  Sender: FDA-Public Use
  Company Number: CA-JNJFOC-20131016133

PATIENT
  Sex: Male
  Weight: 95.4 kg

DRUGS (9)
  1. REMICADE [Suspect]
     Indication: COLITIS ULCERATIVE
     Dosage: 11TH INFUSION
     Route: 042
     Dates: start: 20130903
  2. REMICADE [Suspect]
     Indication: COLITIS ULCERATIVE
     Route: 042
     Dates: start: 20120428
  3. REMICADE [Suspect]
     Indication: COLITIS ULCERATIVE
     Dosage: THE PATIENT HAD 12 DOSES OF INFLIIXMAB INFUSIONS
     Route: 042
     Dates: start: 2013
  4. DIAMICRON [Concomitant]
     Route: 065
  5. METFORMIN [Concomitant]
     Route: 065
  6. VIT C [Concomitant]
     Route: 065
  7. VIT D [Concomitant]
     Route: 065
  8. BARLEY GREEN [Concomitant]
     Route: 065
  9. TURMERIC [Concomitant]
     Route: 065

REACTIONS (1)
  - Hepatic steatosis [Not Recovered/Not Resolved]
